FAERS Safety Report 19133105 (Version 1)
Quarter: 2021Q2

REPORT INFORMATION
  Report Type: Spontaneous
  Country: US (occurrence: US)
  Receive Date: 20210413
  Receipt Date: 20210413
  Transmission Date: 20210717
  Serious: Yes (Disabling, Other)
  Sender: FDA-Public Use
  Company Number: None

PATIENT
  Age: 36 Year
  Sex: Female
  Weight: 112.5 kg

DRUGS (18)
  1. SULFAMETHOXAZOLE?TRIMETHOPRIM [Suspect]
     Active Substance: SULFAMETHOXAZOLE\TRIMETHOPRIM
  2. FISH OIL [Concomitant]
     Active Substance: FISH OIL
  3. BLACK SEED OIL [Concomitant]
  4. CEFTIN [Suspect]
     Active Substance: CEFUROXIME AXETIL
  5. MITOCORE [Concomitant]
  6. VITAMIN K [Concomitant]
     Active Substance: PHYTONADIONE
  7. SERENEGEN [Concomitant]
  8. NP THYROID [Concomitant]
     Active Substance: LEVOTHYROXINE\LIOTHYRONINE
  9. COENZYME Q10 [Concomitant]
     Active Substance: DIETARY SUPPLEMENT\UBIDECARENONE
  10. PROBIOTIC [Concomitant]
     Active Substance: PROBIOTICS NOS
  11. TURMERIC [Concomitant]
     Active Substance: HERBALS\TURMERIC
  12. CIPROFLOXACIN. [Suspect]
     Active Substance: CIPROFLOXACIN
     Indication: URINARY TRACT INFECTION
     Route: 048
     Dates: start: 20200906, end: 20200915
  13. SACCROMYCES BOULARDI [Concomitant]
  14. VITAMIN D [Concomitant]
     Active Substance: VITAMIN D NOS
  15. DIM [Concomitant]
  16. IODINE. [Concomitant]
     Active Substance: IODINE
  17. MAGNESIUM [Concomitant]
     Active Substance: MAGNESIUM
  18. TART CHERRY JUICE [Concomitant]

REACTIONS (11)
  - Autoimmune thyroiditis [None]
  - Head discomfort [None]
  - Nervous system disorder [None]
  - Alopecia [None]
  - Depression [None]
  - Pain in extremity [None]
  - Epicondylitis [None]
  - Coeliac disease [None]
  - Tremor [None]
  - Arthralgia [None]
  - Tendonitis [None]

NARRATIVE: CASE EVENT DATE: 20200911
